FAERS Safety Report 7089085-4 (Version None)
Quarter: 2010Q4

REPORT INFORMATION
  Report Type: 
  Country: None (occurrence: None)
  Receive Date: 20101108
  Receipt Date: 20101029
  Transmission Date: 20110411
  Serious: Yes (Hospitalization)
  Sender: FDA-Public Use
  Company Number: B0683128A

PATIENT
  Sex: Female

DRUGS (2)
  1. ALIFLUS [Suspect]
     Indication: ASTHMA
     Route: 055
     Dates: start: 20100712, end: 20101012
  2. BECLOMETHASONE DIPROPIONATE + FORMOTEROL [Suspect]
     Indication: ASTHMA
     Route: 055
     Dates: start: 20100712, end: 20101012

REACTIONS (2)
  - ERYTHEMA [None]
  - URTICARIA [None]
